FAERS Safety Report 4835650-1 (Version None)
Quarter: 2005Q4

REPORT INFORMATION
  Report Type: 
  Country: None (occurrence: None)
  Receive Date: 20051121
  Receipt Date: 20051111
  Transmission Date: 20060501
  Serious: Yes (Hospitalization)
  Sender: FDA-Public Use
  Company Number: 2005155274

PATIENT
  Age: 40 Year
  Sex: Female

DRUGS (1)
  1. SOMAVERT [Suspect]
     Indication: ACROMEGALY
     Dosage: SUBCUTANEOUS
     Route: 058
     Dates: start: 20051026, end: 20051101

REACTIONS (1)
  - DERMATITIS ALLERGIC [None]
